FAERS Safety Report 26028564 (Version 1)
Quarter: 2025Q4

REPORT INFORMATION
  Report Type: Spontaneous
  Country: US (occurrence: US)
  Receive Date: 20251111
  Receipt Date: 20251111
  Transmission Date: 20260118
  Serious: No
  Sender: ELI LILLY AND COMPANY
  Company Number: US-ELI_LILLY_AND_COMPANY-US202511002250

PATIENT
  Age: 78 Year
  Sex: Male

DRUGS (2)
  1. EBGLYSS [Suspect]
     Active Substance: LEBRIKIZUMAB-LBKZ
     Indication: Product used for unknown indication
     Dosage: 2 DOSAGE FORM, WEEK 0
     Route: 065
  2. EBGLYSS [Suspect]
     Active Substance: LEBRIKIZUMAB-LBKZ
     Dosage: 2 DOSAGE FORM, 7 DAYS AFTER WEEK 0
     Route: 065

REACTIONS (2)
  - Discomfort [Unknown]
  - Inappropriate schedule of product administration [Unknown]
